FAERS Safety Report 9569694 (Version 2)
Quarter: 2014Q1

REPORT INFORMATION
  Report Type: Spontaneous
  Country: US (occurrence: US)
  Receive Date: 20130930
  Receipt Date: 20140226
  Transmission Date: 20141002
  Serious: Yes (Hospitalization, Other)
  Sender: FDA-Public Use
  Company Number: US-AMGEN-USASP2013066087

PATIENT
  Age: 54 Year
  Sex: Female

DRUGS (1)
  1. ENBREL [Suspect]
     Indication: RHEUMATOID ARTHRITIS
     Dosage: 50 MG, QWK
     Route: 065
     Dates: start: 20050401, end: 20140207

REACTIONS (7)
  - Abdominal operation [Recovered/Resolved]
  - Knee arthroplasty [Recovered/Resolved]
  - Meniscus operation [Recovered/Resolved]
  - Spinal fusion surgery [Recovered/Resolved]
  - Ophthalmic herpes zoster [Recovered/Resolved]
  - Muscle spasms [Not Recovered/Not Resolved]
  - Dental implantation [Recovered/Resolved]
